FAERS Safety Report 11458656 (Version 1)
Quarter: 2015Q3

REPORT INFORMATION
  Report Type: Spontaneous
  Country: US (occurrence: None)
  Receive Date: 20150903
  Receipt Date: 20150903
  Transmission Date: 20151125
  Serious: Yes (Other)
  Sender: FDA-Public Use
  Company Number: None

PATIENT
  Age: 59 Year
  Sex: Female
  Weight: 61.24 kg

DRUGS (17)
  1. NORVACS [Concomitant]
  2. ZOFRAN [Concomitant]
     Active Substance: ONDANSETRON HYDROCHLORIDE
  3. DRONABINOL. [Concomitant]
     Active Substance: DRONABINOL
  4. DILAUDID [Concomitant]
     Active Substance: HYDROMORPHONE HYDROCHLORIDE
  5. PREMARIN CREAM [Concomitant]
  6. KLONAPIN [Concomitant]
  7. PHENERGAN [Concomitant]
     Active Substance: PROMETHAZINE HYDROCHLORIDE
  8. LUTEIN [Concomitant]
     Active Substance: LUTEIN
  9. SONTATA [Concomitant]
  10. FRESH KOTE [Concomitant]
  11. TIZANIDINE. [Concomitant]
     Active Substance: TIZANIDINE
  12. VIT A [Concomitant]
  13. MULT VITAMIN [Concomitant]
  14. HYDROMORPHON [Suspect]
     Active Substance: HYDROMORPHONE
     Indication: PAIN
     Route: 048
     Dates: start: 20150804, end: 20150827
  15. EVAMIST [Concomitant]
     Active Substance: ESTRADIOL
  16. VEGETABLE BASED MULTI VITAMIN [Concomitant]
  17. VITAMIN D [Concomitant]
     Active Substance: CHOLECALCIFEROL

REACTIONS (6)
  - Proctalgia [None]
  - Product coating issue [None]
  - Rectal haemorrhage [None]
  - Product substitution issue [None]
  - Diarrhoea [None]
  - Short-bowel syndrome [None]

NARRATIVE: CASE EVENT DATE: 201508
